FAERS Safety Report 22957557 (Version 3)
Quarter: 2023Q4

REPORT INFORMATION
  Report Type: Report from Study
  Country: TH (occurrence: TH)
  Receive Date: 20230919
  Receipt Date: 20231105
  Transmission Date: 20240110
  Serious: Yes (Death, Other)
  Sender: FDA-Public Use
  Company Number: TH-002147023-NVSC2023TH201582

PATIENT
  Age: 31 Year
  Sex: Female

DRUGS (3)
  1. KISQALI [Suspect]
     Active Substance: RIBOCICLIB
     Indication: Breast cancer metastatic
     Dosage: 200 MG
     Route: 048
  2. KISQALI [Suspect]
     Active Substance: RIBOCICLIB
     Dosage: 400 MG, QD (D1-21, 1ST CYCLE)
     Route: 065
     Dates: start: 20230508, end: 20230528
  3. LETROZOLE [Concomitant]
     Active Substance: LETROZOLE
     Indication: Product used for unknown indication
     Dosage: UNK, QD (2.5) (1 TAB OD)
     Route: 048
     Dates: start: 20230420, end: 20230615

REACTIONS (10)
  - Breast cancer [Fatal]
  - Malignant neoplasm progression [Fatal]
  - Metastases to bone [Fatal]
  - Metastases to liver [Fatal]
  - Metastases to lymph nodes [Fatal]
  - Metastases to pleura [Fatal]
  - Metastases to central nervous system [Fatal]
  - Metastases to lung [Fatal]
  - Pleural effusion [Fatal]
  - Neutropenia [Unknown]

NARRATIVE: CASE EVENT DATE: 20230607
